FAERS Safety Report 7081377-8 (Version None)
Quarter: 2010Q4

REPORT INFORMATION
  Report Type: 
  Country: None (occurrence: None)
  Receive Date: 20101102
  Receipt Date: 20101102
  Transmission Date: 20110411
  Serious: Yes (Death)
  Sender: FDA-Public Use
  Company Number: None

PATIENT
  Sex: Male

DRUGS (6)
  1. REVLIMID [Suspect]
     Indication: MULTIPLE MYELOMA
     Dosage: REVLIMID 15MG QD 21D/28D ORALLY
     Route: 048
  2. DEXAMETHASONE [Concomitant]
  3. PERCOCET [Concomitant]
  4. TEMAZEPAM [Concomitant]
  5. MEGESTROL ACETATE [Concomitant]
  6. TERAZOSIN HCL [Concomitant]

REACTIONS (4)
  - ASTHENIA [None]
  - LEUKAEMIA PLASMACYTIC [None]
  - LIVER DISORDER [None]
  - WEIGHT DECREASED [None]
